FAERS Safety Report 7707437 (Version 5)
Quarter: 2017Q3

REPORT INFORMATION
  Report Type: Report from Study
  Country: JP (occurrence: JP)
  Receive Date: 20101214
  Receipt Date: 20170914
  Transmission Date: 20171128
  Serious: Yes (Hospitalization, Other)
  Sender: FDA-Public Use
  Company Number: PHHY2010JP81929

PATIENT
  Age: 55 Year
  Sex: Male

DRUGS (14)
  1. AFINITOR [Suspect]
     Active Substance: EVEROLIMUS
     Indication: RENAL CELL CARCINOMA
     Dosage: 10 MG, QD
     Route: 048
     Dates: start: 20100624, end: 20100713
  2. PURSENNID [Concomitant]
     Active Substance: SENNOSIDES A AND B
     Indication: METASTASES TO THORAX
     Dosage: 24 MG, UNK
     Route: 048
     Dates: start: 20100624
  3. NEXAVAR [Concomitant]
     Active Substance: SORAFENIB
     Indication: RENAL CELL CARCINOMA
     Dosage: 800 MG, UNK
     Route: 048
     Dates: start: 20090723, end: 20100527
  4. CYTOTEC [Concomitant]
     Active Substance: MISOPROSTOL
     Indication: METASTASES TO THORAX
     Dosage: 600 MG, UNK
     Route: 048
     Dates: start: 20090407
  5. SUNITINIB MALATE. [Concomitant]
     Active Substance: SUNITINIB MALATE
     Indication: RENAL CELL CARCINOMA
     Dosage: 50 MG, UNK
     Route: 048
     Dates: start: 20090302, end: 20090528
  6. FAMOTIDINE. [Concomitant]
     Active Substance: FAMOTIDINE
     Indication: METASTASES TO THORAX
     Dosage: 40 MG, UNK
     Route: 048
     Dates: start: 20090625
  7. OXYCONTIN [Concomitant]
     Active Substance: OXYCODONE HYDROCHLORIDE
     Indication: METASTASES TO THORAX
     Dosage: 40 MG, UNK
     Route: 048
     Dates: start: 20090408
  8. NAUZELIN [Concomitant]
     Active Substance: DOMPERIDONE
     Indication: METASTASES TO THORAX
     Dosage: 30 MG, UNK
     Route: 048
     Dates: start: 20100527
  9. CELECOXIB. [Suspect]
     Active Substance: CELECOXIB
     Indication: METASTASES TO THORAX
     Dosage: 200 MG, QD
     Route: 048
     Dates: start: 20100527
  10. ADALAT CC [Concomitant]
     Active Substance: NIFEDIPINE
     Indication: METASTASES TO THORAX
     Dosage: 40 MG, UNK
     Route: 048
     Dates: start: 20091008
  11. FERROMIA [Concomitant]
     Active Substance: FERROUS CITRATE
     Indication: METASTASES TO THORAX
     Dosage: 100 MG, UNK
     Route: 048
     Dates: start: 20100408
  12. OXINORM [Concomitant]
     Active Substance: OXYCODONE HYDROCHLORIDE
     Indication: RENAL CELL CARCINOMA
     Dosage: 5 MG, UNK
     Route: 048
     Dates: start: 20090408
  13. LAXOBERON [Concomitant]
     Active Substance: SODIUM PICOSULFATE
     Indication: RENAL CELL CARCINOMA
     Dosage: 10 ML, UNK
     Route: 048
     Dates: start: 20100624
  14. AFINITOR [Suspect]
     Active Substance: EVEROLIMUS
     Indication: METASTATIC RENAL CELL CARCINOMA
     Dosage: 10 MG, QD
     Route: 048
     Dates: start: 20100902, end: 20100916

REACTIONS (4)
  - Anal abscess [Recovered/Resolved]
  - Gastrointestinal perforation [Recovering/Resolving]
  - Malignant neoplasm progression [Not Recovered/Not Resolved]
  - Tinea pedis [Recovering/Resolving]

NARRATIVE: CASE EVENT DATE: 20100708
